FAERS Safety Report 5071775-6 (Version None)
Quarter: 2006Q3

REPORT INFORMATION
  Report Type: 
  Country: None (occurrence: None)
  Receive Date: 20060801
  Receipt Date: 20060718
  Transmission Date: 20061208
  Serious: No
  Sender: FDA-Public Use
  Company Number: 2006-151

PATIENT
  Age: 75 Year
  Sex: Male

DRUGS (4)
  1. CIPROFLOXACIN [Suspect]
     Indication: SKIN ULCER
     Dosage: TWO TABLETS PER DAY
  2. HYDROCORTISONE TAB [Concomitant]
  3. STILBOESTROL [Concomitant]
  4. ZOLADEX [Concomitant]

REACTIONS (1)
  - DERMATITIS EXFOLIATIVE [None]
